FAERS Safety Report 7950315-5 (Version None)
Quarter: 2011Q4

REPORT INFORMATION
  Report Type: 
  Country: None (occurrence: None)
  Receive Date: 20111130
  Receipt Date: 20111117
  Transmission Date: 20120403
  Serious: Yes (Other)
  Sender: FDA-Public Use
  Company Number: AU-ELI_LILLY_AND_COMPANY-AU201111005217

PATIENT
  Age: 46 Year
  Sex: Female

DRUGS (3)
  1. SEROQUEL [Concomitant]
     Dosage: 600 MG, UNK
  2. CYMBALTA [Suspect]
     Indication: ANXIETY
     Dosage: 60 MG, QD
     Route: 048
     Dates: start: 20110601
  3. SEROQUEL [Concomitant]
     Dosage: 200 MG, UNK

REACTIONS (3)
  - SELF INJURIOUS BEHAVIOUR [None]
  - GLAUCOMA [None]
  - TINNITUS [None]
